FAERS Safety Report 8243504-6 (Version None)
Quarter: 2012Q1

REPORT INFORMATION
  Report Type: 
  Country: None (occurrence: None)
  Receive Date: 20120329
  Receipt Date: 20120324
  Transmission Date: 20120608
  Serious: Yes (Disabling, Other)
  Sender: FDA-Public Use
  Company Number: PHHY2012MX026533

PATIENT
  Age: 71 Year
  Sex: Female

DRUGS (3)
  1. MEJORALITO PROTECT [Concomitant]
  2. DIOVAN HCT [Suspect]
     Indication: HYPERTENSION
     Dosage: 2 DF (160/12.5 MG), DAILY
  3. DAFLON (DIOSMIN/HESPERIDIN) [Concomitant]

REACTIONS (2)
  - GAIT DISTURBANCE [None]
  - ARTHROPATHY [None]
